FAERS Safety Report 12565854 (Version 2)
Quarter: 2016Q3

REPORT INFORMATION
  Report Type: Spontaneous
  Country: CA (occurrence: CA)
  Receive Date: 20160718
  Receipt Date: 20160722
  Transmission Date: 20161109
  Serious: Yes (Hospitalization)
  Sender: FDA-Public Use
  Company Number: CA-PFIZER INC-2016342213

PATIENT
  Sex: Male

DRUGS (11)
  1. CHILDRENS ADVIL [Suspect]
     Active Substance: IBUPROFEN
     Dosage: UNK
  2. CHILDRENS ADVIL [Suspect]
     Active Substance: IBUPROFEN
     Dosage: UNK
  3. CHILDRENS ADVIL [Suspect]
     Active Substance: IBUPROFEN
     Dosage: UNK
  4. CHILDRENS ADVIL [Suspect]
     Active Substance: IBUPROFEN
     Dosage: UNK
  5. CHILDRENS ADVIL [Suspect]
     Active Substance: IBUPROFEN
     Dosage: UNK
  6. ADVIL PEDIATRIC DROPS [Suspect]
     Active Substance: IBUPROFEN
     Dosage: UNKNOWN
  7. ADVIL PEDIATRIC DROPS [Suspect]
     Active Substance: IBUPROFEN
     Dosage: UNK
  8. ADVIL PEDIATRIC DROPS [Suspect]
     Active Substance: IBUPROFEN
     Dosage: UNK
  9. ADVIL PEDIATRIC DROPS FEVER FROM COLDS OR FLU [Suspect]
     Active Substance: IBUPROFEN
     Dosage: UNKNOWN
  10. ADVIL PEDIATRIC DROPS [Suspect]
     Active Substance: IBUPROFEN
     Dosage: UNK
  11. CHILDRENS ADVIL [Suspect]
     Active Substance: IBUPROFEN
     Dosage: UNK

REACTIONS (4)
  - Poor quality drug administered [Unknown]
  - Epilepsy [Unknown]
  - Product quality issue [Unknown]
  - Product use issue [Unknown]
